FAERS Safety Report 16710978 (Version 2)
Quarter: 2019Q4

REPORT INFORMATION
  Report Type: Report from Study
  Country: NL (occurrence: NL)
  Receive Date: 20190816
  Receipt Date: 20191206
  Transmission Date: 20200122
  Serious: Yes (Other)
  Sender: FDA-Public Use
  Company Number: NL-PFIZER INC-2019346812

PATIENT
  Age: 70 Year
  Sex: Female

DRUGS (19)
  1. CETOMACROGOL 1000 [Concomitant]
     Dosage: UNK, AS NEEDED
  2. DESOXIMETASON [Concomitant]
     Active Substance: DESOXIMETASONE
     Dosage: 1 DF, 1X/DAY (2.5 MILLIGRAM PER GRAM, DAILY)
  3. OXAZEPAM. [Concomitant]
     Active Substance: OXAZEPAM
     Dosage: 10 MG, 3X/DAY (AS NEEDED )
  4. OMEPRAZOLE. [Concomitant]
     Active Substance: OMEPRAZOLE
     Dosage: 20 MG, 2X/DAY 1XT
  5. CALCIUM CARBONATE/COLECALCIFEROL [Concomitant]
     Active Substance: CALCIUM CARBONATE\CHOLECALCIFEROL
     Dosage: 1.25G/440IE (500MG CA) 1X 1T
  6. FLECAINIDE [Concomitant]
     Active Substance: FLECAINIDE
     Dosage: 50 MG, 2X/DAY 1T
  7. VERAPAMIL [Concomitant]
     Active Substance: VERAPAMIL HYDROCHLORIDE
     Dosage: 120 MG, 1X/DAY
  8. XGEVA [Suspect]
     Active Substance: DENOSUMAB
     Indication: PROPHYLAXIS
     Dosage: 120 MG, CYCLIC (EVERY 4 WEEKS)
     Dates: start: 20190403
  9. DOXYCYCLINE HYCLATE. [Suspect]
     Active Substance: DOXYCYCLINE HYCLATE
     Indication: NONINFECTIVE ENCEPHALITIS
     Dosage: 100 MG, UNK
  10. CLOBETASOL [Concomitant]
     Active Substance: CLOBETASOL
     Dosage: 1 DF, 1X/DAY (0.5 MILLIGRAM PER GRAM DAILY)
  11. NITROFURANTOIN. [Concomitant]
     Active Substance: NITROFURANTOIN
     Dosage: 50 MILLIGRAM, 4D1C
  12. TETRACYCLINE [Concomitant]
     Active Substance: TETRACYCLINE
     Dosage: 30 MG/G, 2X/DAY
  13. ACETYLSALICYLIC ACID [Concomitant]
     Active Substance: ASPIRIN
     Dosage: 80 MG, 1X/DAY
  14. DESOXIMETASONE. [Concomitant]
     Active Substance: DESOXIMETASONE
     Dosage: 2.5 MG/G, DAILY
  15. AFATINIB [Concomitant]
     Active Substance: AFATINIB
     Indication: PROPHYLAXIS
     Dosage: 30 MG, 1X/DAY
  16. VERAPAMIL [Concomitant]
     Active Substance: VERAPAMIL HYDROCHLORIDE
     Dosage: 240 MG, UNK
  17. XGEVA [Suspect]
     Active Substance: DENOSUMAB
     Dosage: 120 MG, CYCLIC (EVERY 4 WEEKS)
  18. HYDROXOCOBALAMIN [Concomitant]
     Active Substance: HYDROXOCOBALAMIN
     Dosage: 500 UG/ML
  19. OXYCODONE [Concomitant]
     Active Substance: OXYCODONE
     Dosage: 5 MG, 2X/DAY 1-2T

REACTIONS (3)
  - Genital hyperaesthesia [Unknown]
  - Diarrhoea [Not Recovered/Not Resolved]
  - Noninfective encephalitis [Unknown]
